FAERS Safety Report 24624378 (Version 1)
Quarter: 2024Q4

REPORT INFORMATION
  Report Type: Spontaneous
  Country: US (occurrence: None)
  Receive Date: 20241114
  Receipt Date: 20241114
  Transmission Date: 20250115
  Serious: Yes (Other)
  Sender: Public
  Company Number: None

PATIENT
  Age: 73 Year
  Sex: Female
  Weight: 54.9 kg

DRUGS (6)
  1. SPRAVATO [Suspect]
     Active Substance: ESKETAMINE
     Indication: Depression
     Dates: start: 20241028, end: 20241028
  2. URSODIOL [Concomitant]
     Active Substance: URSODIOL
  3. RALOXIFENE [Concomitant]
     Active Substance: RALOXIFENE
  4. VITAMIN D [Concomitant]
     Active Substance: VITAMIN D NOS
  5. CALCIUM [Concomitant]
     Active Substance: CALCIUM
  6. moisturizing eye drops [Concomitant]

REACTIONS (6)
  - Disorientation [None]
  - Paralysis [None]
  - Dysstasia [None]
  - Gait disturbance [None]
  - Blood pressure increased [None]
  - Insomnia [None]

NARRATIVE: CASE EVENT DATE: 20241028
